FAERS Safety Report 5238381-1 (Version None)
Quarter: 2007Q1

REPORT INFORMATION
  Report Type: 
  Country: None (occurrence: None)
  Receive Date: 20070215
  Receipt Date: 20070202
  Transmission Date: 20070707
  Serious: Yes (Other)
  Sender: FDA-Public Use
  Company Number: US-AMGEN-KDL207977

PATIENT
  Sex: Male
  Weight: 72.2 kg

DRUGS (8)
  1. EPOGEN [Suspect]
     Indication: RENAL FAILURE CHRONIC
     Route: 058
     Dates: start: 20040901
  2. RENAL SOFT GEL [Concomitant]
  3. HYDRALAZINE HYDROCHLORIDE [Concomitant]
  4. LISINOPRIL [Concomitant]
  5. ALLOPURINOL SODIUM [Concomitant]
  6. BUPROPION HCL [Concomitant]
  7. NEPHRO-VITE [Concomitant]
  8. COREG [Concomitant]

REACTIONS (2)
  - BONE MARROW FAILURE [None]
  - HAEMOGLOBIN DECREASED [None]
